FAERS Safety Report 5164637-7 (Version None)
Quarter: 2006Q4

REPORT INFORMATION
  Report Type: 
  Country: None (occurrence: None)
  Receive Date: 20061205
  Receipt Date: 20060829
  Transmission Date: 20070319
  Serious: Yes (Life-Threatening)
  Sender: FDA-Public Use
  Company Number: JP-AVENTIS-200612694JP

PATIENT
  Age: 62 Year
  Sex: Male
  Weight: 80 kg

DRUGS (6)
  1. ALLEGRA [Suspect]
     Indication: URTICARIA
     Route: 048
     Dates: end: 20060701
  2. CEREKINON [Concomitant]
     Dates: start: 20060612, end: 20060712
  3. COLONEL [Concomitant]
     Indication: GASTROINTESTINAL DISORDER
     Dosage: DOSE: 2 PACKS
     Route: 048
     Dates: start: 20060612, end: 20060712
  4. BUP-4 [Concomitant]
     Indication: BENIGN PROSTATIC HYPERPLASIA
     Dates: start: 20060612, end: 20060712
  5. BLOPRESS [Concomitant]
     Indication: HYPERTENSION
     Dates: start: 20060612, end: 20060712
  6. SIMARON [Concomitant]

REACTIONS (8)
  - ALANINE AMINOTRANSFERASE INCREASED [None]
  - ANTI-HBC ANTIBODY POSITIVE [None]
  - ASPARTATE AMINOTRANSFERASE INCREASED [None]
  - BLOOD BILIRUBIN INCREASED [None]
  - BLOOD LACTATE DEHYDROGENASE INCREASED [None]
  - GAMMA-GLUTAMYLTRANSFERASE INCREASED [None]
  - HEPATOMEGALY [None]
  - LIVER DISORDER [None]
